FAERS Safety Report 24332433 (Version 1)
Quarter: 2024Q3

REPORT INFORMATION
  Report Type: Report from Study
  Country: FR (occurrence: FR)
  Receive Date: 20240918
  Receipt Date: 20240918
  Transmission Date: 20241016
  Serious: Yes (Other)
  Sender: ABBVIE
  Company Number: FR-ABBVIE-5909470

PATIENT
  Sex: Female
  Weight: 68 kg

DRUGS (1)
  1. RISANKIZUMAB [Suspect]
     Active Substance: RISANKIZUMAB
     Indication: Crohn^s disease
     Route: 058

REACTIONS (3)
  - Foetal death [Unknown]
  - Maternal exposure during pregnancy [Unknown]
  - Parvovirus infection [Unknown]
